FAERS Safety Report 8573956-3 (Version None)
Quarter: 2012Q2

REPORT INFORMATION
  Report Type: 
  Country: None (occurrence: None)
  Receive Date: 20120423
  Receipt Date: 20100430
  Transmission Date: 20120825
  Serious: Yes (Other)
  Sender: FDA-Public Use
  Company Number: PHHY2010US28236

PATIENT

DRUGS (2)
  1. CHEMOTHERAPEUTICS NOS (NO INGREDIENTS/SUBSTANCES) [Suspect]
  2. EXJADE [Suspect]
     Dosage: ORAL
     Route: 048

REACTIONS (1)
  - THROMBOCYTOPENIA [None]
